FAERS Safety Report 19864851 (Version 1)
Quarter: 2021Q3

REPORT INFORMATION
  Report Type: Spontaneous
  Country: IN (occurrence: IN)
  Receive Date: 20210922
  Receipt Date: 20210922
  Transmission Date: 20211014
  Serious: Yes (Hospitalization)
  Sender: FDA-Public Use
  Company Number: IN-ROCHE-2911563

PATIENT
  Age: 40 Year
  Sex: Female

DRUGS (1)
  1. TOCILIZUMAB. [Suspect]
     Active Substance: TOCILIZUMAB
     Indication: COVID-19
     Route: 065
     Dates: start: 20210503

REACTIONS (12)
  - Epistaxis [Unknown]
  - Sinusitis fungal [Unknown]
  - Anaemia [Unknown]
  - Respiratory distress [Unknown]
  - Oxygen saturation decreased [Unknown]
  - Fungal infection [Unknown]
  - Mucormycosis [Unknown]
  - Mouth haemorrhage [Unknown]
  - Blood creatinine increased [Unknown]
  - Lung disorder [Unknown]
  - Haemoglobin decreased [Unknown]
  - Off label use [Unknown]

NARRATIVE: CASE EVENT DATE: 20210601
